FAERS Safety Report 16045530 (Version 1)
Quarter: 2019Q2

REPORT INFORMATION
  Report Type: Spontaneous
  Country: US (occurrence: US)
  Receive Date: 20190306
  Receipt Date: 20190306
  Transmission Date: 20190711
  Serious: Yes (Other)
  Sender: FDA-Public Use
  Company Number: None

PATIENT
  Age: 43 Year
  Sex: Female
  Weight: 54 kg

DRUGS (8)
  1. SYNTHROID [Concomitant]
     Active Substance: LEVOTHYROXINE SODIUM
  2. RIFAMIXIN [Concomitant]
     Active Substance: RIFAXIMIN
  3. CAPTOPRIL. [Concomitant]
     Active Substance: CAPTOPRIL
  4. ASPIRIN. [Concomitant]
     Active Substance: ASPIRIN
  5. LAMOTRIGINE (GENERIC) [Suspect]
     Active Substance: LAMOTRIGINE
     Indication: EPILEPSY
     Route: 048
  6. LAMOTRIGINE (GENERIC) [Suspect]
     Active Substance: LAMOTRIGINE
     Indication: EPILEPSY
     Route: 048
  7. GRALISE [Concomitant]
     Active Substance: GABAPENTIN
  8. CYTOMEL [Concomitant]
     Active Substance: LIOTHYRONINE SODIUM

REACTIONS (4)
  - Therapeutic product effect decreased [None]
  - Rash [None]
  - Product substitution issue [None]
  - Urticaria [None]

NARRATIVE: CASE EVENT DATE: 20190221
